FAERS Safety Report 5091750-5 (Version None)
Quarter: 2006Q3

REPORT INFORMATION
  Report Type: 
  Country: None (occurrence: None)
  Receive Date: 20060829
  Receipt Date: 20060503
  Transmission Date: 20061208
  Serious: Yes (Other)
  Sender: FDA-Public Use
  Company Number: US-BRISTOL-MYERS SQUIBB COMPANY-13367180

PATIENT
  Age: 72 Year
  Sex: Male

DRUGS (2)
  1. ERBITUX [Suspect]
     Indication: NEOPLASM MALIGNANT
     Dosage: FIRST DOSE.
     Route: 042
     Dates: start: 20060427, end: 20060427
  2. BENADRYL [Concomitant]
     Indication: PREMEDICATION
     Dates: start: 20060427, end: 20060427

REACTIONS (2)
  - ANAPHYLACTIC REACTION [None]
  - INFUSION RELATED REACTION [None]
